FAERS Safety Report 9803501 (Version 4)
Quarter: 2014Q1

REPORT INFORMATION
  Report Type: Report from Study
  Country: GB (occurrence: GB)
  Receive Date: 20140108
  Receipt Date: 20140124
  Transmission Date: 20141002
  Serious: Yes (Other)
  Sender: FDA-Public Use
  Company Number: GB-VERTEX PHARMACEUTICALS INC-2013-011410

PATIENT
  Age: 37 Year
  Sex: Male

DRUGS (4)
  1. VX-950 (TELAPREVIR) [Suspect]
     Indication: HEPATITIS C
     Dosage: 750 MG, TID, TABLET
     Route: 048
     Dates: start: 20131112, end: 20140109
  2. RIBAVIRIN [Suspect]
     Indication: HEPATITIS C
     Dosage: DOSAGE FORM: TABLETS
     Route: 048
     Dates: start: 20131112
  3. RIBAVIRIN [Suspect]
     Dosage: 4 DF, QD
     Route: 048
  4. PEG INTERFERON [Suspect]
     Indication: HEPATITIS C
     Dosage: DOSAGE FORM: INJECTION
     Route: 058
     Dates: start: 20131112, end: 20140109

REACTIONS (11)
  - Drug administration error [Unknown]
  - Lower respiratory tract infection [Not Recovered/Not Resolved]
  - Pain [Not Recovered/Not Resolved]
  - Tongue ulceration [Not Recovered/Not Resolved]
  - Dyspnoea [Not Recovered/Not Resolved]
  - Influenza like illness [Not Recovered/Not Resolved]
  - Malaise [Not Recovered/Not Resolved]
  - Asthenia [Not Recovered/Not Resolved]
  - Fatigue [Not Recovered/Not Resolved]
  - Pruritus [Not Recovered/Not Resolved]
  - Insomnia [Not Recovered/Not Resolved]
